FAERS Safety Report 23178519 (Version 1)
Quarter: 2023Q4

REPORT INFORMATION
  Report Type: Spontaneous
  Country: BR (occurrence: BR)
  Receive Date: 20231113
  Receipt Date: 20231113
  Transmission Date: 20240109
  Serious: Yes (Other)
  Sender: FDA-Public Use
  Company Number: BR-TAKEDA-2023TUS108728

PATIENT

DRUGS (1)
  1. LISDEXAMFETAMINE DIMESYLATE [Suspect]
     Active Substance: LISDEXAMFETAMINE DIMESYLATE
     Indication: Binge eating
     Dosage: UNK UNK, QD
     Route: 065
     Dates: start: 202306

REACTIONS (5)
  - Choking [Unknown]
  - Asthma [Unknown]
  - Cough [Recovered/Resolved]
  - Agitation [Unknown]
  - Wrong technique in product usage process [Unknown]
